FAERS Safety Report 4653985-2 (Version None)
Quarter: 2005Q2

REPORT INFORMATION
  Report Type: 
  Country: None (occurrence: None)
  Receive Date: 20050504
  Receipt Date: 20050422
  Transmission Date: 20051028
  Serious: Yes (Hospitalization, Other)
  Sender: FDA-Public Use
  Company Number: HQWYE184222APR05

PATIENT
  Age: 86 Year
  Sex: Female

DRUGS (7)
  1. SOMAC (PANTOPRAZOLE) [Suspect]
     Dosage: 40 MG 1X PER 1 DAY
  2. ALDACTONE [Suspect]
     Dosage: 200 MG 1X PER 1 DAY
     Route: 048
     Dates: end: 20040112
  3. ALDALIX (FUROSEMIDE/SPIRONOLACTONE) [Suspect]
     Dosage: 80 MG 1X PER 1 DAY
     Dates: end: 20040112
  4. IRBESARTAN [Suspect]
     Dosage: 15 MG 1X PER 1 DAY
     Route: 048
     Dates: end: 20040112
  5. CLOPIDOGREL BISULFATE [Concomitant]
  6. IPRATROPIUM BROMIDE [Concomitant]
  7. SALBUTAMOL (SALBUTAMOL) [Concomitant]

REACTIONS (7)
  - CHEST DISCOMFORT [None]
  - DYSPNOEA [None]
  - HYPERKALAEMIA [None]
  - MALAISE [None]
  - RENAL FAILURE ACUTE [None]
  - URINARY TRACT INFECTION [None]
  - WHEEZING [None]
